FAERS Safety Report 4697415-3 (Version None)
Quarter: 2005Q2

REPORT INFORMATION
  Report Type: 
  Country: None (occurrence: None)
  Receive Date: 20050622
  Receipt Date: 20050615
  Transmission Date: 20051028
  Serious: Yes (Hospitalization)
  Sender: FDA-Public Use
  Company Number: DE-ABBOTT-05P-062-0303298-00

PATIENT
  Age: 80 Year
  Sex: Male

DRUGS (2)
  1. ERGENYL TABLETS [Suspect]
     Indication: GRAND MAL CONVULSION
     Route: 048
  2. PHENPROCOUMON [Concomitant]
     Indication: DEEP VEIN THROMBOSIS
     Route: 048

REACTIONS (1)
  - PROTHROMBIN TIME PROLONGED [None]
